FAERS Safety Report 12557461 (Version 1)
Quarter: 2016Q3

REPORT INFORMATION
  Report Type: Report from Study
  Country: RO (occurrence: RO)
  Receive Date: 20160714
  Receipt Date: 20160714
  Transmission Date: 20161109
  Serious: Yes (Hospitalization)
  Sender: FDA-Public Use
  Company Number: RO-KADMON PHARMACEUTICALS, LLC-KAD201607-002412

PATIENT
  Age: 58 Year
  Sex: Female

DRUGS (6)
  1. RIBAVIRIN. [Suspect]
     Active Substance: RIBAVIRIN
     Indication: HEPATITIS C
     Dosage: FILM-COATED TABLET, 2 IN THE MORNING AND 3 IN THE EVENING
     Route: 048
     Dates: start: 20160614, end: 20160627
  2. VIEKIRAX [Suspect]
     Active Substance: OMBITASVIR\PARITAPREVIR\RITONAVIR
     Indication: HEPATITIS C
     Dosage: FILM-COATED TABLET
     Route: 048
     Dates: start: 20160614
  3. RIBAVIRIN. [Suspect]
     Active Substance: RIBAVIRIN
     Indication: HEPATIC CIRRHOSIS
     Route: 048
     Dates: start: 20160628
  4. EXVIERA [Suspect]
     Active Substance: DASABUVIR
     Indication: HEPATIC CIRRHOSIS
  5. EXVIERA [Suspect]
     Active Substance: DASABUVIR
     Indication: HEPATITIS C
     Dosage: FILM-COATED TABLET
     Route: 048
     Dates: start: 20160614
  6. VIEKIRAX [Suspect]
     Active Substance: OMBITASVIR\PARITAPREVIR\RITONAVIR
     Indication: HEPATIC CIRRHOSIS

REACTIONS (15)
  - Posture abnormal [Recovered/Resolved]
  - Peripheral coldness [Unknown]
  - Dizziness [Unknown]
  - Swelling [Unknown]
  - Pruritus [Unknown]
  - Gingival bleeding [Unknown]
  - Epistaxis [Unknown]
  - Nausea [Unknown]
  - Chills [Unknown]
  - Unevaluable event [Unknown]
  - Vascular fragility [Unknown]
  - Tinnitus [Unknown]
  - Chest pain [Unknown]
  - Fatigue [Unknown]
  - Parosmia [Unknown]

NARRATIVE: CASE EVENT DATE: 20160614
